FAERS Safety Report 4489917-X (Version None)
Quarter: 2004Q4

REPORT INFORMATION
  Report Type: 
  Country: None (occurrence: None)
  Receive Date: 20041026
  Receipt Date: 20041013
  Transmission Date: 20050328
  Serious: Yes (Death, Life-Threatening)
  Sender: FDA-Public Use
  Company Number: 2003PK00996

PATIENT
  Age: 29 Month
  Sex: Male
  Weight: 12.3 kg

DRUGS (5)
  1. PROPOFOL [Suspect]
     Indication: SEDATIVE THERAPY
     Dosage: 100 MG PER HOUR FOR 1.5 HOURS
  2. PROPOFOL [Suspect]
     Indication: SEDATIVE THERAPY
     Dosage: 200 MG PER HOUR FOR 14.5 HOURS
  3. PROPOFOL [Suspect]
     Indication: SEDATIVE THERAPY
     Dosage: 150 MG PER HOUR FOR 5.0 HOURS
  4. CEFOTAXIM [Concomitant]
  5. METHYLPREDNISOLONE [Concomitant]

REACTIONS (12)
  - ANURIA [None]
  - BRADYCARDIA [None]
  - CARDIAC ARREST [None]
  - ELECTROCARDIOGRAM QRS COMPLEX PROLONGED [None]
  - HEART RATE INCREASED [None]
  - LACTIC ACIDOSIS [None]
  - OVERDOSE [None]
  - PULMONARY OEDEMA [None]
  - RHABDOMYOLYSIS [None]
  - VENTRICULAR DYSFUNCTION [None]
  - VENTRICULAR FIBRILLATION [None]
  - VENTRICULAR TACHYCARDIA [None]
